FAERS Safety Report 7999856-5 (Version None)
Quarter: 2011Q4

REPORT INFORMATION
  Report Type: 
  Country: None (occurrence: None)
  Receive Date: 20111222
  Receipt Date: 20111216
  Transmission Date: 20120403
  Serious: No
  Sender: FDA-Public Use
  Company Number: US-BIOGENIDEC-2011BI038056

PATIENT
  Age: 48 Year
  Sex: Female

DRUGS (7)
  1. FENTANYL [Concomitant]
     Route: 062
  2. PERCOCET [Concomitant]
     Indication: PAIN
  3. TYSABRI [Suspect]
     Indication: MULTIPLE SCLEROSIS
     Route: 042
     Dates: start: 20110822
  4. OXYCONTIN [Concomitant]
     Indication: PAIN
  5. FENTANYL [Concomitant]
  6. FENTANYL [Concomitant]
     Route: 062
  7. FENTANYL [Concomitant]
     Indication: PAIN

REACTIONS (4)
  - HYPOAESTHESIA [None]
  - VISION BLURRED [None]
  - THINKING ABNORMAL [None]
  - PAIN IN EXTREMITY [None]
